FAERS Safety Report 23381477 (Version 2)
Quarter: 2024Q1

REPORT INFORMATION
  Report Type: Spontaneous
  Country: US (occurrence: US)
  Receive Date: 20240109
  Receipt Date: 20240130
  Transmission Date: 20240409
  Serious: Yes (Other)
  Sender: FDA-Public Use
  Company Number: US-BRISTOL-MYERS SQUIBB COMPANY-2024-003662

PATIENT
  Age: 74 Year
  Sex: Female

DRUGS (1)
  1. POMALYST [Suspect]
     Active Substance: POMALIDOMIDE
     Indication: Plasma cell myeloma
     Dosage: TAKE 1 CAPSULE BY MOUTH WHOLE WITH WATER, WITH OR WITHOUT FOOD AT THE SAME TIME DAILY ON DAYS 1-21 O
     Route: 048
     Dates: start: 20221205

REACTIONS (14)
  - Constipation [Unknown]
  - Diarrhoea [Unknown]
  - Spinal fracture [Unknown]
  - Back pain [Unknown]
  - Headache [Unknown]
  - Nasopharyngitis [Unknown]
  - Sinus pain [Unknown]
  - Rash [Unknown]
  - Contusion [Unknown]
  - Pruritus [Unknown]
  - Haemorrhage [Unknown]
  - Asthenia [Unknown]
  - Hypertension [Unknown]
  - Neuropathy peripheral [Not Recovered/Not Resolved]
